FAERS Safety Report 4860780-8 (Version None)
Quarter: 2005Q4

REPORT INFORMATION
  Report Type: 
  Country: None (occurrence: None)
  Receive Date: 20051216
  Receipt Date: 20051130
  Transmission Date: 20060501
  Serious: Yes (Hospitalization)
  Sender: FDA-Public Use
  Company Number: 220001L05JPN

PATIENT
  Age: 20 Year
  Sex: Male

DRUGS (1)
  1. SOMATROPIN (SOMATROPIN) [Suspect]
     Indication: GROWTH HORMONE DEFICIENCY

REACTIONS (6)
  - BLOOD LACTATE DEHYDROGENASE INCREASED [None]
  - HYDRONEPHROSIS [None]
  - METASTASES TO LYMPH NODES [None]
  - PNEUMOTHORAX [None]
  - TESTICULAR EMBRYONAL CARCINOMA STAGE II [None]
  - TESTICULAR YOLK SAC TUMOUR STAGE II [None]
